FAERS Safety Report 6525267-5 (Version None)
Quarter: 2009Q4

REPORT INFORMATION
  Report Type: 
  Country: None (occurrence: None)
  Receive Date: 20091222
  Receipt Date: 20091209
  Transmission Date: 20100525
  Serious: Yes (Hospitalization, Disabling)
  Sender: FDA-Public Use
  Company Number: CIP09002614

PATIENT
  Sex: Female

DRUGS (9)
  1. BENET (RISEDRONATE SODIUM) TABLET, 17.5G [Suspect]
     Indication: OSTEOPOROSIS
     Dosage: 17.5 MG ONCE WEEKLY, ORAL; 17.5 MG ONCE WEEKLY, ORAL
     Route: 048
     Dates: start: 20080501, end: 20090529
  2. BENET (RISEDRONATE SODIUM) TABLET, 17.5G [Suspect]
     Indication: OSTEOPOROSIS
     Dosage: 17.5 MG ONCE WEEKLY, ORAL; 17.5 MG ONCE WEEKLY, ORAL
     Route: 048
     Dates: start: 20090707, end: 20090830
  3. ACTONEL [Suspect]
     Indication: OSTEOPOROSIS
     Dosage: 2.5 MG, DAILY
     Dates: start: 20040911, end: 20080501
  4. GASRICK (FAMOTIDINE) [Concomitant]
  5. ALOSENN /00476901/(ACHILLEA MILLEFOLIUM, RUBIA TINCTORUM ROOT TINCTURE [Concomitant]
  6. ISOSORBIDE DINITRATE [Concomitant]
  7. NORVASC [Concomitant]
  8. DICHLOTRIDE /00022001/(HYDROCHLOROTHIAZIDE) [Concomitant]
  9. ANTIBIOTICS [Concomitant]

REACTIONS (6)
  - CONDITION AGGRAVATED [None]
  - DENTAL CARIES [None]
  - OSTEOMYELITIS [None]
  - PURULENT DISCHARGE [None]
  - TOOTH ABSCESS [None]
  - TOOTHACHE [None]
